FAERS Safety Report 8539072 (Version 4)
Quarter: 2014Q2

REPORT INFORMATION
  Report Type: Spontaneous
  Country: IE (occurrence: IE)
  Receive Date: 20120501
  Receipt Date: 20140521
  Transmission Date: 20141212
  Serious: Yes (Hospitalization, Other)
  Sender: FDA-Public Use
  Company Number: IE-JNJFOC-20120304968

PATIENT
  Age: 72 Year
  Sex: Female

DRUGS (6)
  1. XARELTO [Suspect]
     Indication: HIP ARTHROPLASTY
     Route: 048
     Dates: start: 20120228
  2. XARELTO [Suspect]
     Indication: THROMBOSIS PROPHYLAXIS
     Route: 048
     Dates: start: 20120228
  3. CLEXANE [Suspect]
     Indication: THROMBOSIS PROPHYLAXIS
     Route: 058
  4. DIFENE [Suspect]
     Indication: PRODUCT USED FOR UNKNOWN INDICATION
  5. TYLEX [Concomitant]
  6. NEXIUM [Concomitant]

REACTIONS (2)
  - Circulatory collapse [Unknown]
  - Subdural haematoma [Not Recovered/Not Resolved]
